FAERS Safety Report 15750136 (Version 1)
Quarter: 2018Q4

REPORT INFORMATION
  Report Type: Report from Study
  Country: CA (occurrence: CA)
  Receive Date: 20181221
  Receipt Date: 20181221
  Transmission Date: 20190205
  Serious: Yes (Other)
  Sender: FDA-Public Use
  Company Number: CA-PFIZER INC-2018519870

PATIENT
  Age: 49 Year
  Sex: Male
  Weight: 91 kg

DRUGS (6)
  1. TRAZODONE [Concomitant]
     Active Substance: TRAZODONE HYDROCHLORIDE
     Dosage: UNK
     Route: 065
  2. ADVAIR HFA [Concomitant]
     Active Substance: FLUTICASONE PROPIONATE\SALMETEROL XINAFOATE
     Dosage: UNK
     Route: 065
  3. CALCIUM/VITAMIN D3 [Concomitant]
     Dosage: UNK
     Route: 065
  4. SOTALOL. [Concomitant]
     Active Substance: SOTALOL
     Dosage: UNK
     Route: 065
  5. DOXYCYCLINE HYCLATE. [Suspect]
     Active Substance: DOXYCYCLINE HYCLATE
     Indication: BRONCHITIS
     Dosage: UNK
     Route: 065
  6. REMICADE [Suspect]
     Active Substance: INFLIXIMAB
     Indication: COLITIS ULCERATIVE
     Dosage: 500 MG, 1 EVERY 7 WEEK (S)
     Route: 042

REACTIONS (4)
  - Off label use [Not Recovered/Not Resolved]
  - Product use issue [Not Recovered/Not Resolved]
  - Drug intolerance [Not Recovered/Not Resolved]
  - Bronchitis [Not Recovered/Not Resolved]
